FAERS Safety Report 5091791-8 (Version None)
Quarter: 2006Q3

REPORT INFORMATION
  Report Type: 
  Country: None (occurrence: None)
  Receive Date: 20060824
  Receipt Date: 20060816
  Transmission Date: 20061208
  Serious: Yes (Other)
  Sender: FDA-Public Use
  Company Number: 2006US001793

PATIENT
  Age: 7 Year
  Sex: Female

DRUGS (2)
  1. PROTOPIC [Suspect]
     Indication: VITILIGO
     Dosage: TOPICAL
     Route: 061
  2. ELIDEL [Suspect]
     Indication: VITILIGO
     Dosage: TOPICAL
     Route: 061

REACTIONS (1)
  - BASAL CELL CARCINOMA [None]
